FAERS Safety Report 8321627-0 (Version None)
Quarter: 2012Q2

REPORT INFORMATION
  Report Type: 
  Country: None (occurrence: None)
  Receive Date: 20120430
  Receipt Date: 20120418
  Transmission Date: 20120825
  Serious: Yes (Hospitalization)
  Sender: FDA-Public Use
  Company Number: JP-UCBSA-049481

PATIENT
  Age: 73 Year
  Sex: Male

DRUGS (12)
  1. BISOPROLOL FUMARATE [Concomitant]
     Dosage: DAILY DOSE:0.625 M G
     Route: 048
  2. ADONA [Concomitant]
     Dosage: DAILY DOSE: 60 MG
     Route: 048
  3. KEPPRA [Suspect]
     Indication: COMPLEX PARTIAL SEIZURES
     Route: 048
     Dates: start: 20111229, end: 20120111
  4. WARFARIN SODIUM [Concomitant]
     Dosage: DAILY DOSE: 1 MG
     Route: 048
  5. THEOLONG [Concomitant]
     Dosage: DAILY DOSE:400 MG
     Route: 048
  6. MUCODYNE [Concomitant]
     Dosage: DAILY DOSE:1000 MG
     Route: 048
  7. TAMSULOSIN HCL [Concomitant]
     Dosage: DAILY DOSE:0.2 MG
     Route: 048
  8. DEPAS [Concomitant]
     Dosage: DAILY DOSE:0.5 MG
     Route: 048
  9. KEPPRA [Suspect]
     Route: 048
     Dates: start: 20111113, end: 20111228
  10. PHENYTOIN SODIUM CAP [Concomitant]
     Dosage: DAILY DOSE:200 MG
     Route: 048
  11. PHENYTOIN SODIUM CAP [Concomitant]
     Indication: COMPLEX PARTIAL SEIZURES
     Route: 048
     Dates: start: 20060801
  12. EPINASTINE HYDROCHLORIDE [Concomitant]
     Dosage: DAILY DOSE:20 MG
     Route: 048

REACTIONS (5)
  - DECREASED ACTIVITY [None]
  - HAEMOGLOBIN DECREASED [None]
  - HAEMATOCRIT DECREASED [None]
  - PLATELET COUNT INCREASED [None]
  - DYSPHAGIA [None]
